FAERS Safety Report 6820323-6 (Version None)
Quarter: 2010Q3

REPORT INFORMATION
  Report Type: 
  Country: None (occurrence: None)
  Receive Date: 20100707
  Receipt Date: 20100623
  Transmission Date: 20110219
  Serious: Yes (Hospitalization, Other)
  Sender: FDA-Public Use
  Company Number: PHEH2006US14223

PATIENT
  Sex: Female
  Weight: 60.5 kg

DRUGS (5)
  1. AREDIA [Suspect]
     Indication: RESORPTION BONE INCREASED
     Dosage: 90 MG, QMO
     Route: 042
     Dates: start: 20021217, end: 20040726
  2. AREDIA [Suspect]
     Dosage: UNK, QMO
     Route: 042
     Dates: start: 20040823, end: 20050222
  3. ZOMETA [Suspect]
     Indication: OSTEOLYSIS
     Dosage: 4 MG, QMO
     Route: 042
  4. THALIDOMIDE [Concomitant]
  5. DECADRON [Concomitant]

REACTIONS (37)
  - ABSCESS [None]
  - ABSCESS DRAINAGE [None]
  - ACTINIC KERATOSIS [None]
  - ACTINOMYCOSIS [None]
  - ANXIETY [None]
  - ARTHRALGIA [None]
  - BACK PAIN [None]
  - BIOPSY BONE ABNORMAL [None]
  - CHRONIC OBSTRUCTIVE PULMONARY DISEASE [None]
  - COR PULMONALE [None]
  - DEBRIDEMENT [None]
  - DECREASED APPETITE [None]
  - DECREASED INTEREST [None]
  - DIABETES MELLITUS [None]
  - DYSPHAGIA [None]
  - DYSPNOEA [None]
  - GENERAL PHYSICAL HEALTH DETERIORATION [None]
  - HYPERCAPNIA [None]
  - INFECTION [None]
  - INFLAMMATION [None]
  - INJURY [None]
  - LIFE EXPECTANCY SHORTENED [None]
  - MOBILITY DECREASED [None]
  - MYELOMA RECURRENCE [None]
  - OEDEMA PERIPHERAL [None]
  - ORAL MUCOSAL EXFOLIATION [None]
  - OSTEOMYELITIS [None]
  - OSTEONECROSIS OF JAW [None]
  - OSTEOPOROSIS [None]
  - PAIN [None]
  - PRIMARY SEQUESTRUM [None]
  - RASH [None]
  - RESPIRATORY ACIDOSIS [None]
  - SEQUESTRECTOMY [None]
  - SINUSITIS [None]
  - SQUAMOUS CELL CARCINOMA [None]
  - WEIGHT DECREASED [None]
